FAERS Safety Report 15473635 (Version 1)
Quarter: 2018Q4

REPORT INFORMATION
  Report Type: Spontaneous
  Country: BE (occurrence: BE)
  Receive Date: 20181008
  Receipt Date: 20181008
  Transmission Date: 20190205
  Serious: Yes (Other)
  Sender: FDA-Public Use
  Company Number: BE-PFIZER INC-2018396764

PATIENT
  Age: 75 Year
  Sex: Female

DRUGS (2)
  1. LINEZOLID. [Suspect]
     Active Substance: LINEZOLID
     Dosage: UNK
  2. MEROPENEM. [Suspect]
     Active Substance: MEROPENEM
     Dosage: UNK

REACTIONS (4)
  - Respiratory distress [Unknown]
  - Lung infection [Unknown]
  - Systemic candida [Unknown]
  - Disease recurrence [Unknown]
